FAERS Safety Report 9198498 (Version 1)
Quarter: 2013Q1

REPORT INFORMATION
  Report Type: Spontaneous
  Country: US (occurrence: None)
  Receive Date: 20120709
  Receipt Date: 20120709
  Transmission Date: 20140127
  Serious: Yes (Other)
  Sender: FDA-Public Use
  Company Number: PHHY2011US60448

PATIENT
  Age: 50 Year
  Sex: Female
  Weight: 71.4 kg

DRUGS (4)
  1. GLEEVEC (IMATINIB) UNKNOWN [Suspect]
     Indication: SOFT TISSUE CANCER
     Route: 048
     Dates: start: 20051228
  2. LEVOTHYROXINE (LEVOTHYROXINE) [Concomitant]
  3. OMPEPRAZOLE (OMPEORAZOLE) [Concomitant]
  4. VITAMIN D (ERGOCALCIFEROL) [Concomitant]

REACTIONS (5)
  - Anaemia [None]
  - Serum ferritin decreased [None]
  - Haemoglobin decreased [None]
  - Fatigue [None]
  - Malaise [None]
